FAERS Safety Report 8226807-0 (Version None)
Quarter: 2012Q1

REPORT INFORMATION
  Report Type: 
  Country: None (occurrence: None)
  Receive Date: 20120322
  Receipt Date: 20120314
  Transmission Date: 20120608
  Serious: Yes (Other)
  Sender: FDA-Public Use
  Company Number: US-BAYER-2010-007053

PATIENT
  Age: 31 Year
  Sex: Female
  Weight: 150.11 kg

DRUGS (11)
  1. DROSPIRENONE AND ETHINYL ESTRADIOL [Suspect]
     Indication: PREMENSTRUAL SYNDROME
     Dosage: UNK
     Dates: start: 20090601, end: 20100101
  2. MORPHINE [Concomitant]
     Dosage: 4 MG, UNK
     Route: 042
     Dates: start: 20080706
  3. DOXYCYCLINE [Concomitant]
     Dosage: 100 MG, BID
     Route: 048
  4. YAZ [Suspect]
     Indication: PREMENSTRUAL SYNDROME
     Dosage: UNK
     Dates: start: 20080901, end: 20081001
  5. FLAGYL [Concomitant]
     Dosage: 500 MG, BID
     Dates: start: 20080706
  6. MIRAPEX [Concomitant]
  7. NAPROXEN (ALEVE) [Concomitant]
     Dosage: UNK
     Dates: start: 20080706
  8. ZOFRAN [Concomitant]
     Dosage: 4 MG, UNK
     Route: 042
     Dates: start: 20080706
  9. IBUPROFEN (ADVIL) [Concomitant]
     Dosage: UNK UNK, PRN
     Dates: start: 20080706
  10. ROCEPHIN [Concomitant]
     Dosage: 250 MG, UNK
     Route: 042
     Dates: start: 20080706
  11. PERCOCET [Concomitant]

REACTIONS (3)
  - PAIN [None]
  - CHOLECYSTITIS CHRONIC [None]
  - GALLBLADDER INJURY [None]
